FAERS Safety Report 7787728-0 (Version None)
Quarter: 2011Q3

REPORT INFORMATION
  Report Type: 
  Country: None (occurrence: None)
  Receive Date: 20110929
  Receipt Date: 20110921
  Transmission Date: 20111222
  Serious: Yes (Hospitalization)
  Sender: FDA-Public Use
  Company Number: BR-ASTRAZENECA-2011SE57305

PATIENT
  Age: 722 Month
  Sex: Male
  Weight: 69 kg

DRUGS (10)
  1. AMARYL [Concomitant]
     Route: 048
  2. JANUVIA [Concomitant]
     Route: 048
  3. ATENOLOL [Suspect]
     Indication: HYPERTENSION
     Route: 048
  4. PROPAFENONE HCL [Concomitant]
     Indication: ARRHYTHMIA
     Route: 048
  5. AMARYL [Concomitant]
     Indication: TYPE 2 DIABETES MELLITUS
     Route: 048
     Dates: end: 20110501
  6. TENORETIC 100 [Suspect]
     Indication: HYPERTENSION
     Dosage: 50 + 12.5 MG OD
     Route: 048
  7. JANUVIA [Concomitant]
     Indication: TYPE 2 DIABETES MELLITUS
     Route: 048
     Dates: end: 20110501
  8. INSULIN [Concomitant]
     Indication: TYPE 2 DIABETES MELLITUS
     Dosage: 6 U AT NIGHT
     Route: 058
     Dates: end: 20110501
  9. SODIUM BICARBONATE [Suspect]
     Route: 065
     Dates: start: 20110401, end: 20110501
  10. ATACAND HCT [Suspect]
     Indication: HYPERTENSION
     Dosage: 16 / 12.5 MG OD
     Route: 048
     Dates: start: 20090101, end: 20110501

REACTIONS (4)
  - BLOOD PRESSURE INCREASED [None]
  - CARDIAC FAILURE [None]
  - DRUG INEFFECTIVE [None]
  - GENERALISED OEDEMA [None]
